FAERS Safety Report 8957342 (Version 1)
Quarter: 2012Q4

REPORT INFORMATION
  Report Type: Report from Study
  Country: US (occurrence: US)
  Receive Date: 20121210
  Receipt Date: 20121210
  Transmission Date: 20130627
  Serious: Yes (Hospitalization, Other)
  Sender: FDA-Public Use
  Company Number: US-ROCHE-1152850

PATIENT
  Age: 61 Year
  Sex: Male

DRUGS (4)
  1. PEG-INTERFERON ALFA 2A [Suspect]
     Indication: CHRONIC HEPATITIS C
     Route: 065
     Dates: start: 20121002
  2. TELAPREVIR [Suspect]
     Indication: CHRONIC HEPATITIS C
     Route: 065
     Dates: start: 20121002
  3. RIBAVIRIN [Suspect]
     Indication: CHRONIC HEPATITIS C
     Route: 065
     Dates: start: 20121002
  4. RIBAVIRIN [Suspect]
     Dosage: divded dose
     Route: 065

REACTIONS (6)
  - Haematocrit decreased [Unknown]
  - Dizziness [Unknown]
  - Renal failure [Unknown]
  - Dizziness [Unknown]
  - Renal disorder [Unknown]
  - Asthenia [Unknown]
